FAERS Safety Report 6207718-9 (Version None)
Quarter: 2009Q2

REPORT INFORMATION
  Report Type: 
  Country: None (occurrence: None)
  Receive Date: 20090526
  Receipt Date: 20090511
  Transmission Date: 20091009
  Serious: Yes (Death, Other)
  Sender: FDA-Public Use
  Company Number: E7273-00070-SPO-DE

PATIENT
  Age: 64 Year
  Sex: Female

DRUGS (2)
  1. TARGRETIN [Suspect]
     Indication: MYCOSIS FUNGOIDES
     Dosage: ORAL
     Route: 048
  2. PSORALEN-UVA (PSORALENS FOR TOPICAL USE) [Concomitant]

REACTIONS (2)
  - HODGKIN'S DISEASE [None]
  - RESPIRATORY TRACT INFECTION [None]
